FAERS Safety Report 4415761-5 (Version None)
Quarter: 2004Q2

REPORT INFORMATION
  Report Type: 
  Country: None (occurrence: None)
  Receive Date: 20040628
  Receipt Date: 20040415
  Transmission Date: 20050107
  Serious: Yes (Hospitalization)
  Sender: FDA-Public Use
  Company Number: 364747

PATIENT
  Sex: Female

DRUGS (1)
  1. CELLCEPT [Suspect]
     Indication: SYSTEMIC LUPUS ERYTHEMATOSUS
     Dosage: 500 MG   2 PER DAY
     Dates: start: 20031015

REACTIONS (5)
  - ABDOMINAL PAIN [None]
  - ECCHYMOSIS [None]
  - OEDEMA [None]
  - PRURITUS [None]
  - RASH ERYTHEMATOUS [None]
